FAERS Safety Report 5157551-4 (Version None)
Quarter: 2006Q4

REPORT INFORMATION
  Report Type: 
  Country: None (occurrence: None)
  Receive Date: 20061127
  Receipt Date: 20061117
  Transmission Date: 20070319
  Serious: Yes (Other)
  Sender: FDA-Public Use
  Company Number: GB-GLAXOSMITHKLINE-B0447736A

PATIENT
  Age: 55 Year
  Sex: Male

DRUGS (15)
  1. ADARTREL [Suspect]
     Indication: RESTLESS LEGS SYNDROME
     Route: 048
     Dates: start: 20060905, end: 20061001
  2. AMLODIPINE [Concomitant]
  3. ASPIRIN [Concomitant]
  4. ATORVASTATIN CALCIUM [Concomitant]
  5. CANDESARTAN [Concomitant]
     Dosage: 4MG PER DAY
  6. CLOPIDOGREL [Concomitant]
  7. GABAPENTIN [Concomitant]
     Dosage: 300MG TWICE PER DAY
  8. LACRI-LUBE [Concomitant]
  9. LANSOPRAZOLE [Concomitant]
  10. NICORANDIL [Concomitant]
     Dosage: 10MG TWICE PER DAY
  11. NITROLINGUAL [Concomitant]
  12. PRAMIPEXOLE DIHYDROCHLORIDE [Concomitant]
  13. QUININE SULFATE [Concomitant]
  14. TRAMADOL HCL [Concomitant]
  15. VISCOTEARS [Concomitant]

REACTIONS (1)
  - ERYTHEMA NODOSUM [None]
